FAERS Safety Report 5248859-2 (Version None)
Quarter: 2007Q1

REPORT INFORMATION
  Report Type: 
  Country: None (occurrence: None)
  Receive Date: 20070228
  Receipt Date: 20060321
  Transmission Date: 20070707
  Serious: No
  Sender: FDA-Public Use
  Company Number: US-GLAXOSMITHKLINE-A0598444A

PATIENT
  Age: 43 Year
  Sex: Male

DRUGS (4)
  1. VALTREX [Suspect]
     Dosage: 500MG TWICE PER DAY
     Route: 048
     Dates: start: 20030301
  2. ZOVIRAX [Suspect]
     Dosage: 400MG PER DAY
     Route: 048
  3. PROPECIA [Concomitant]
  4. DIOVAN [Concomitant]

REACTIONS (1)
  - HERPES SIMPLEX [None]
